FAERS Safety Report 9116236 (Version 1)
Quarter: 2013Q1

REPORT INFORMATION
  Report Type: Spontaneous
  Country: US (occurrence: US)
  Receive Date: 20130225
  Receipt Date: 20130225
  Transmission Date: 20140127
  Serious: Yes (Death)
  Sender: FDA-Public Use
  Company Number: US-ELI_LILLY_AND_COMPANY-US201212006544

PATIENT
  Age: 78 Year
  Sex: Female

DRUGS (1)
  1. ZYPREXA [Suspect]
     Dosage: 10 MG, QD
     Dates: start: 20111210

REACTIONS (3)
  - Death [Fatal]
  - Joint injury [Unknown]
  - Fall [Unknown]
